FAERS Safety Report 13878777 (Version 1)
Quarter: 2017Q3

REPORT INFORMATION
  Report Type: Spontaneous
  Country: US (occurrence: US)
  Receive Date: 20170817
  Receipt Date: 20170817
  Transmission Date: 20171127
  Serious: No
  Sender: FDA-Public Use
  Company Number: US-SYNERGY PHARMACEUTICALS INC-US-2017SNG000067

PATIENT

DRUGS (4)
  1. COUMADIN [Concomitant]
     Active Substance: WARFARIN SODIUM
     Indication: THROMBOSIS
     Dosage: 3 MG, QD
     Dates: start: 2002
  2. DIVALEX OD [Concomitant]
     Indication: DIVERTICULUM
     Dosage: UNK
     Dates: start: 201703, end: 201703
  3. LINZESS [Concomitant]
     Active Substance: LINACLOTIDE
     Indication: DIVERTICULUM
     Dosage: 1 TABLET, QD
     Route: 048
     Dates: start: 201705, end: 201705
  4. TRULANCE [Suspect]
     Active Substance: PLECANATIDE
     Indication: DIVERTICULITIS
     Dosage: 3 MG, QD
     Route: 048
     Dates: start: 201703

REACTIONS (7)
  - Flatulence [Not Recovered/Not Resolved]
  - Unevaluable event [Recovered/Resolved]
  - Product use in unapproved indication [Not Recovered/Not Resolved]
  - Haemorrhoidal haemorrhage [Not Recovered/Not Resolved]
  - Faeces hard [Not Recovered/Not Resolved]
  - Drug ineffective for unapproved indication [Not Recovered/Not Resolved]
  - Constipation [Not Recovered/Not Resolved]

NARRATIVE: CASE EVENT DATE: 2017
